FAERS Safety Report 17980288 (Version 3)
Quarter: 2020Q3

REPORT INFORMATION
  Report Type: Report from Study
  Country: HU (occurrence: HU)
  Receive Date: 20200703
  Receipt Date: 20200715
  Transmission Date: 20201103
  Serious: Yes (Death, Other)
  Sender: FDA-Public Use
  Company Number: NVSC2020HU188336

PATIENT
  Age: 60 Year
  Sex: Male
  Weight: 68 kg

DRUGS (7)
  1. ZARZIO [Suspect]
     Active Substance: FILGRASTIM
     Dosage: 1 DF (1X1 AMPOULE), QD 48 MILLION UNITS
     Route: 058
     Dates: start: 20200519, end: 20200621
  2. MEDROL [Concomitant]
     Active Substance: METHYLPREDNISOLONE
     Indication: PRODUCT USED FOR UNKNOWN INDICATION
     Dosage: 32 MG, UNKNOWN
     Route: 065
  3. ETOPOSIDE. [Suspect]
     Active Substance: ETOPOSIDE
     Indication: NEUROENDOCRINE TUMOUR OF THE LUNG
     Dosage: 96 MG, UNKNOWN
     Route: 065
     Dates: start: 2020
  4. NEO FERRO FOLGAMMA [Concomitant]
     Indication: PRODUCT USED FOR UNKNOWN INDICATION
     Dosage: 1 DF, TID
     Route: 065
  5. CARBOPLATIN. [Suspect]
     Active Substance: CARBOPLATIN
     Indication: NEUROENDOCRINE TUMOUR OF THE LUNG
     Dosage: 383 MG, UNKNOWN
     Route: 065
     Dates: start: 2020
  6. ZARZIO [Suspect]
     Active Substance: FILGRASTIM
     Indication: NEUTROPENIA
     Dosage: UNK UNK, BID (48 MILLION IU)
     Route: 058
     Dates: start: 20200305
  7. VOMITA [Concomitant]
     Indication: PRODUCT USED FOR UNKNOWN INDICATION
     Dosage: 1 DF, TID
     Route: 065

REACTIONS (5)
  - Gamma-glutamyltransferase increased [Unknown]
  - General physical health deterioration [Fatal]
  - Haemoglobin decreased [Unknown]
  - Platelet count decreased [Unknown]
  - Neutropenia [Unknown]

NARRATIVE: CASE EVENT DATE: 20200615
